FAERS Safety Report 8553905-4 (Version None)
Quarter: 2012Q3

REPORT INFORMATION
  Report Type: 
  Country: None (occurrence: None)
  Receive Date: 20120731
  Receipt Date: 20120719
  Transmission Date: 20120928
  Serious: Yes (Other)
  Sender: FDA-Public Use
  Company Number: SE-009507513-1105USA00141

PATIENT

DRUGS (12)
  1. BLINDED EZETIMIBE (+) SIMVASTATIN [Suspect]
     Indication: ACUTE CORONARY SYNDROME
     Route: 048
     Dates: start: 20080522
  2. BLINDED POST TRIAL THERAPY [Suspect]
     Indication: ACUTE CORONARY SYNDROME
     Route: 048
     Dates: start: 20080522
  3. SIMVASTATIN [Concomitant]
     Route: 048
     Dates: start: 20100521
  4. PLACEBO [Suspect]
     Indication: ACUTE CORONARY SYNDROME
     Route: 048
     Dates: start: 20080522
  5. SIMVASTATIN [Suspect]
     Indication: ACUTE CORONARY SYNDROME
     Route: 048
     Dates: start: 20080522
  6. SIMVASTATIN [Suspect]
     Indication: ACUTE CORONARY SYNDROME
     Dosage: UNK
     Route: 048
     Dates: start: 20080522
  7. COZAAR [Suspect]
     Route: 048
     Dates: start: 20081124
  8. OMEPRAZOLE [Concomitant]
     Dosage: UNK UNK, PRN
     Route: 048
     Dates: start: 20100521
  9. BISOPROLOL FUMARATE [Concomitant]
     Route: 048
     Dates: start: 20080522
  10. BLINDED PRE TRIAL THERAPY [Suspect]
     Indication: ACUTE CORONARY SYNDROME
     Route: 048
     Dates: start: 20080522
  11. ASPIRIN [Concomitant]
     Route: 048
     Dates: start: 20080519
  12. PLACEBO [Suspect]
     Indication: ACUTE CORONARY SYNDROME
     Dosage: UNK
     Route: 048
     Dates: start: 20080522

REACTIONS (1)
  - BASAL CELL CARCINOMA [None]
